FAERS Safety Report 18997923 (Version 4)
Quarter: 2024Q1

REPORT INFORMATION
  Report Type: Other
  Country: US (occurrence: None)
  Receive Date: 20210311
  Receipt Date: 20240102
  Transmission Date: 20240409
  Serious: Yes (Hospitalization)
  Sender: FDA-Public Use
  Company Number: US-ROCHE-2778853

PATIENT
  Age: 40 Year
  Sex: Male
  Weight: 74.91 kg

DRUGS (7)
  1. OCREVUS [Suspect]
     Active Substance: OCRELIZUMAB
     Indication: Relapsing multiple sclerosis
     Dosage: MOST RECENT INFUSIONS RECEIVED ON 15/JUN/2018, 10/DEC/2018, 07/JUN/2019, 17/DEC/2019, 17/JUN/2020, 1
     Route: 042
     Dates: start: 20180601
  2. KEPPRA [Concomitant]
     Active Substance: LEVETIRACETAM
     Indication: Seizure
     Route: 048
     Dates: start: 2017
  3. KEPPRA [Concomitant]
     Active Substance: LEVETIRACETAM
     Indication: Epilepsy
  4. PHENYTOIN [Concomitant]
     Active Substance: PHENYTOIN
     Indication: Seizure
     Route: 048
     Dates: start: 2020
  5. PHENYTOIN [Concomitant]
     Active Substance: PHENYTOIN
     Indication: Epilepsy
  6. VITAMIN D3 [Concomitant]
     Active Substance: CHOLECALCIFEROL
     Route: 048
     Dates: start: 20170105
  7. LACOSAMIDE [Concomitant]
     Active Substance: LACOSAMIDE
     Dosage: STARTED EITHER -OCT-2023 OR 2 TO 3 MONTHS BEFORE -OCT-2023. TAKES IN?MORNING AND NIGHT.
     Route: 048

REACTIONS (6)
  - Seizure [Not Recovered/Not Resolved]
  - Coma [Unknown]
  - Influenza [Recovered/Resolved]
  - COVID-19 [Unknown]
  - Cyst [Not Recovered/Not Resolved]
  - Multiple sclerosis [Not Recovered/Not Resolved]

NARRATIVE: CASE EVENT DATE: 20191019
